FAERS Safety Report 16425467 (Version 1)
Quarter: 2019Q2

REPORT INFORMATION
  Report Type: Report from Study
  Country: IT (occurrence: IT)
  Receive Date: 20190613
  Receipt Date: 20190613
  Transmission Date: 20190711
  Serious: Yes (Other)
  Sender: FDA-Public Use
  Company Number: IT-TEVA-2019-IT-1060835

PATIENT
  Age: 79 Year
  Sex: Male

DRUGS (4)
  1. MEDROL 4 MG COMPRESSE [Concomitant]
  2. FOLINA 5 MG CAPSULE MOLLI [Concomitant]
  3. ZOLANTRAC 20 MG CAPSULE RIGIDE GASTRORESISTENTI [Concomitant]
  4. METHOTREXATE 10 MG/1,33 ML SOLUZIONE INIETTABILEETHOTREXATE [Suspect]
     Active Substance: METHOTREXATE
     Indication: PSORIATIC ARTHROPATHY
     Dosage: 10 MG PER 1 CYCLICAL
     Route: 030

REACTIONS (1)
  - Lung disorder [Unknown]

NARRATIVE: CASE EVENT DATE: 20190522
